FAERS Safety Report 19241054 (Version 1)
Quarter: 2021Q2

REPORT INFORMATION
  Report Type: Spontaneous
  Country: US (occurrence: US)
  Receive Date: 20210510
  Receipt Date: 20210510
  Transmission Date: 20210717
  Serious: Yes (Disabling)
  Sender: FDA-Public Use
  Company Number: None

PATIENT
  Age: 31 Year
  Sex: Female
  Weight: 67.5 kg

DRUGS (6)
  1. CELEXA [Concomitant]
     Active Substance: CITALOPRAM HYDROBROMIDE
  2. UBRELVY [Concomitant]
     Active Substance: UBROGEPANT
  3. XANAX [Concomitant]
     Active Substance: ALPRAZOLAM
  4. NP THYROID [Suspect]
     Active Substance: LEVOTHYROXINE\LIOTHYRONINE
     Indication: AUTOIMMUNE THYROIDITIS
     Dosage: ?          QUANTITY:1 TABLET(S);?
     Route: 048
     Dates: start: 20210413, end: 20210510
  5. LISINOPRIL. [Concomitant]
     Active Substance: LISINOPRIL
  6. AIMOVIG [Concomitant]
     Active Substance: ERENUMAB-AOOE

REACTIONS (5)
  - Ear haemorrhage [None]
  - Dizziness [None]
  - Epistaxis [None]
  - Recalled product administered [None]
  - Fatigue [None]

NARRATIVE: CASE EVENT DATE: 20210414
